FAERS Safety Report 18782011 (Version 1)
Quarter: 2021Q1

REPORT INFORMATION
  Report Type: Spontaneous
  Country: US (occurrence: US)
  Receive Date: 20210125
  Receipt Date: 20210125
  Transmission Date: 20210419
  Serious: No
  Sender: FDA-Public Use
  Company Number: US-ALLERGAN-2014736US

PATIENT
  Age: 81 Year
  Sex: Female

DRUGS (5)
  1. RESTASIS [Suspect]
     Active Substance: CYCLOSPORINE
     Indication: PRODUCT USED FOR UNKNOWN INDICATION
     Dosage: 2 GTT, QID
     Route: 047
     Dates: start: 202003
  2. ATENOLOL. [Concomitant]
     Active Substance: ATENOLOL
     Dosage: 25 MG
  3. DESONIDE. [Concomitant]
     Active Substance: DESONIDE
  4. PRAVASTATIN. [Concomitant]
     Active Substance: PRAVASTATIN
  5. MUPIROCIN. [Concomitant]
     Active Substance: MUPIROCIN

REACTIONS (3)
  - Intentional product misuse [Unknown]
  - Product container issue [Unknown]
  - Product dose omission issue [Unknown]

NARRATIVE: CASE EVENT DATE: 202003
